FAERS Safety Report 5441455-3 (Version None)
Quarter: 2007Q3

REPORT INFORMATION
  Report Type: 
  Country: None (occurrence: None)
  Receive Date: 20070904
  Receipt Date: 20070827
  Transmission Date: 20080115
  Serious: Yes (Hospitalization)
  Sender: FDA-Public Use
  Company Number: AU-JNJFOC-20070900046

PATIENT
  Sex: Male

DRUGS (2)
  1. TRAMADOL HCL [Suspect]
     Indication: PAIN
     Route: 048
  2. CLOPINE [Suspect]
     Indication: SCHIZOPHRENIA
     Route: 048

REACTIONS (7)
  - ABDOMINAL PAIN [None]
  - HYPERHIDROSIS [None]
  - LIPASE INCREASED [None]
  - MALAISE [None]
  - PANCREATITIS [None]
  - PYREXIA [None]
  - THROMBOCYTOPENIA [None]
